FAERS Safety Report 10067282 (Version 1)
Quarter: 2014Q2

REPORT INFORMATION
  Report Type: Spontaneous
  Country: CA (occurrence: None)
  Receive Date: 20140407
  Receipt Date: 20140407
  Transmission Date: 20141212
  Serious: Yes (Death, Life-Threatening, Hospitalization, Other)
  Sender: FDA-Public Use
  Company Number: FK201401109

PATIENT
  Age: 74 Year
  Sex: Female

DRUGS (8)
  1. FUROSEMIDE (MANUFACTURER UNKNOWN) (FUROSEMIDE) (FUROSEMIDE) [Suspect]
     Indication: OEDEMA PERIPHERAL
     Dosage: 40 MG, 40 START 10 D PRIOR
  2. DIMENHYDRINATE INJECTION (MANUFACTURER UNKNOWN) (DIMENHYDRINATE) (DIMENHYDRINATE) [Suspect]
     Indication: OEDEMA PERIPHERAL
     Dosage: 50 MG, AS NEEDED, UNKNOWN
  3. MORPHINE (MANUFACTURER UNKNOWN) (MORPHINE) (MORPHINE) [Suspect]
     Indication: PAIN
     Dosage: 30 MG, AS NEEDED, UNKNOWN
  4. LACTULOSE (MANUFACTURER UNKNOWN) (LACTULOSE) (LACTULOSE) [Suspect]
     Indication: CONSTIPATION
     Dosage: 30 ML, 1 IN 1 D, UNKNOWN
  5. MIRTAZAPINE (MIRTAZAPINE) [Suspect]
     Indication: MAJOR DEPRESSION
     Dosage: 30 MG, INTIATED 2 MONTHS PRIOR TO ADMIT, UNKNOWN
  6. DOCUSATE SODIUM (DOCUSATE SODIUM) [Concomitant]
  7. BISACODYL (BISACODYL) [Concomitant]
  8. SODIUM PHOSPHATE (SODIUM PHOSPHATE) [Concomitant]

REACTIONS (12)
  - Myocardial infarction [None]
  - Colonic pseudo-obstruction [None]
  - Intestinal obstruction [None]
  - Mutism [None]
  - Constipation [None]
  - Urinary retention [None]
  - Motor dysfunction [None]
  - Delirium [None]
  - Bladder dilatation [None]
  - Heart rate increased [None]
  - Somnolence [None]
  - Sudden cardiac death [None]
